FAERS Safety Report 12696803 (Version 1)
Quarter: 2016Q3

REPORT INFORMATION
  Report Type: Spontaneous
  Country: US (occurrence: None)
  Receive Date: 20160829
  Receipt Date: 20160829
  Transmission Date: 20161109
  Serious: No
  Sender: FDA-Public Use
  Company Number: None

PATIENT
  Age: 32 Year
  Sex: Female
  Weight: 50.35 kg

DRUGS (1)
  1. VENLAFAXINE [Suspect]
     Active Substance: VENLAFAXINE HYDROCHLORIDE
     Indication: MAJOR DEPRESSION
     Dosage: IN THE MORNING
     Route: 048
     Dates: start: 20160812

REACTIONS (3)
  - Sensation of foreign body [None]
  - Ocular hyperaemia [None]
  - Paraesthesia [None]

NARRATIVE: CASE EVENT DATE: 20160812
